FAERS Safety Report 4427264-2 (Version None)
Quarter: 2004Q3

REPORT INFORMATION
  Report Type: 
  Country: None (occurrence: None)
  Receive Date: 20040813
  Receipt Date: 20040813
  Transmission Date: 20050211
  Serious: Yes (Congenital Anomaly)
  Sender: FDA-Public Use
  Company Number: None

PATIENT
  Sex: Male
  Weight: 3.1752 kg

DRUGS (2)
  1. WELLBUTRIN [Suspect]
  2. PROZAC [Suspect]

REACTIONS (4)
  - COLOBOMA [None]
  - CONGENITAL EYE DISORDER [None]
  - CRYPTOPHTHALMOS [None]
  - DRUG EXPOSURE DURING PREGNANCY [None]
